FAERS Safety Report 23371650 (Version 1)
Quarter: 2024Q1

REPORT INFORMATION
  Report Type: Spontaneous
  Country: US (occurrence: None)
  Receive Date: 20240105
  Receipt Date: 20240105
  Transmission Date: 20240409
  Serious: Yes (Hospitalization)
  Sender: FDA-Public Use
  Company Number: None

PATIENT
  Sex: Female

DRUGS (1)
  1. NIVESTYM [Suspect]
     Active Substance: FILGRASTIM-AAFI
     Indication: Pancytopenia
     Dosage: FREQUENCY : WEEKLY;?
     Route: 058
     Dates: start: 202101

REACTIONS (2)
  - Hospitalisation [None]
  - Emergency care [None]
